FAERS Safety Report 12530019 (Version 1)
Quarter: 2016Q3

REPORT INFORMATION
  Report Type: Spontaneous
  Country: US (occurrence: None)
  Receive Date: 20160705
  Receipt Date: 20160705
  Transmission Date: 20161109
  Serious: Yes (Hospitalization)
  Sender: FDA-Public Use
  Company Number: None

PATIENT
  Age: 61 Year
  Sex: Female
  Weight: 93 kg

DRUGS (1)
  1. CANAGLIFLOZIN, 300 MG [Suspect]
     Active Substance: CANAGLIFLOZIN
     Indication: TYPE 2 DIABETES MELLITUS

REACTIONS (5)
  - Nausea [None]
  - Humerus fracture [None]
  - Fall [None]
  - Acidosis [None]
  - Diabetic ketoacidosis [None]

NARRATIVE: CASE EVENT DATE: 20160622
